FAERS Safety Report 9325444 (Version 1)
Quarter: 2013Q2

REPORT INFORMATION
  Report Type: Spontaneous
  Country: US (occurrence: None)
  Receive Date: 20130531
  Receipt Date: 20130531
  Transmission Date: 20140414
  Serious: Yes (Hospitalization)
  Sender: FDA-Public Use
  Company Number: None

PATIENT
  Age: 29 Year
  Sex: Male
  Weight: 76.57 kg

DRUGS (18)
  1. VINCRISTINE SULFATE [Suspect]
  2. CYCLOPHOSPHAMIDE [Suspect]
  3. CYTARABINE [Suspect]
  4. DEXAMETHASONE [Suspect]
  5. DOXORUBICIN HYDROCHLORIDE [Suspect]
  6. METHOTREXATE [Suspect]
  7. PEGASPARGASE [Suspect]
  8. THIOGUANINE [Suspect]
  9. ACYCLOVIR [Concomitant]
  10. ATENOLOL-CHLORTHALIDONE [Concomitant]
  11. BACTRIM [Concomitant]
  12. CIPROFLOXACIN [Concomitant]
  13. FLUCONAZOLE [Concomitant]
  14. LISINOPRIL [Concomitant]
  15. OXYCODONE [Concomitant]
  16. POSACONAZOLE [Concomitant]
  17. PROCHLORPERAZINE MALEATE [Concomitant]
  18. PYRIDOXINE [Concomitant]

REACTIONS (2)
  - Febrile neutropenia [None]
  - Device related infection [None]
